FAERS Safety Report 19907344 (Version 1)
Quarter: 2021Q3

REPORT INFORMATION
  Report Type: Spontaneous
  Country: US (occurrence: US)
  Receive Date: 20210930
  Receipt Date: 20210930
  Transmission Date: 20211014
  Serious: Yes (Other)
  Sender: FDA-Public Use
  Company Number: US-DSJP-DSU-2021-132124

PATIENT
  Age: 76 Year
  Sex: Male

DRUGS (1)
  1. ENHERTU [Suspect]
     Active Substance: FAM-TRASTUZUMAB DERUXTECAN-NXKI
     Indication: COLORECTAL CANCER METASTATIC
     Dosage: UNK
     Route: 042
     Dates: start: 20200701

REACTIONS (6)
  - Off label use [Unknown]
  - Renal impairment [Unknown]
  - Peripheral swelling [Unknown]
  - Ascites [Unknown]
  - Fatigue [Unknown]
  - Poor peripheral circulation [Unknown]
